FAERS Safety Report 4784176-2 (Version None)
Quarter: 2005Q3

REPORT INFORMATION
  Report Type: 
  Country: None (occurrence: None)
  Receive Date: 20050930
  Receipt Date: 20050824
  Transmission Date: 20060218
  Serious: No
  Sender: FDA-Public Use
  Company Number: US-GLAXOSMITHKLINE-A0571667A

PATIENT
  Age: 75 Year
  Sex: Female

DRUGS (9)
  1. FLOVENT [Suspect]
     Dosage: 110MCG TWICE PER DAY
     Route: 055
     Dates: start: 20050724
  2. NEXIUM [Concomitant]
  3. CLINORIL [Concomitant]
  4. ZOCOR [Concomitant]
  5. CARDIZEM [Concomitant]
  6. TOPROL-XL [Concomitant]
  7. METOCLOPRAMIDE [Concomitant]
  8. WARFARIN SODIUM [Concomitant]
  9. LASIX [Concomitant]

REACTIONS (1)
  - PHARMACEUTICAL PRODUCT COMPLAINT [None]
